FAERS Safety Report 10713310 (Version 1)
Quarter: 2015Q1

REPORT INFORMATION
  Report Type: Spontaneous
  Country: US (occurrence: US)
  Receive Date: 20150115
  Receipt Date: 20150115
  Transmission Date: 20150721
  Serious: Yes (Other)
  Sender: FDA-Public Use
  Company Number: US-PFIZER INC-2015015433

PATIENT
  Age: 66 Year
  Sex: Male
  Weight: 113 kg

DRUGS (1)
  1. LEVOXYL [Suspect]
     Active Substance: LEVOTHYROXINE SODIUM
     Indication: THYROID HORMONE REPLACEMENT THERAPY
     Dosage: 0.3 MG, DAILY (0.15MG 2 AT NIGHT)

REACTIONS (3)
  - Drug dose omission [Unknown]
  - Thyroid cancer recurrent [Unknown]
  - Joint injury [Unknown]

NARRATIVE: CASE EVENT DATE: 2007
